FAERS Safety Report 16933921 (Version 1)
Quarter: 2019Q4

REPORT INFORMATION
  Report Type: Spontaneous
  Country: US (occurrence: US)
  Receive Date: 20191018
  Receipt Date: 20191018
  Transmission Date: 20200122
  Serious: Yes (Life-Threatening)
  Sender: FDA-Public Use
  Company Number: US-ASTRAZENECA-2019SF47495

PATIENT
  Age: 27745 Day
  Sex: Female
  Weight: 72.6 kg

DRUGS (2)
  1. BRILINTA [Suspect]
     Active Substance: TICAGRELOR
     Indication: ANTICOAGULANT THERAPY
     Dosage: 90 MG 60 COUNT , TWO TIMES A DAY
     Route: 048
     Dates: start: 20191012, end: 20191014
  2. BABY ASPIRIN [Concomitant]
     Active Substance: ASPIRIN
     Dosage: TAKING BABY ASPIRIN WITH HER BRILINTA WITH THE EVENING DOSE

REACTIONS (2)
  - Near death experience [Unknown]
  - Dyspnoea [Unknown]

NARRATIVE: CASE EVENT DATE: 20191013
